FAERS Safety Report 6815628-9 (Version None)
Quarter: 2010Q3

REPORT INFORMATION
  Report Type: 
  Country: None (occurrence: None)
  Receive Date: 20100702
  Receipt Date: 20100623
  Transmission Date: 20110219
  Serious: Yes (Death)
  Sender: FDA-Public Use
  Company Number: BR-MEDIMMUNE-MEDI-0011364

PATIENT
  Sex: Male
  Weight: 3.5 kg

DRUGS (7)
  1. SYNAGIS [Suspect]
     Route: 030
     Dates: start: 20100602, end: 20100602
  2. SYNAGIS [Suspect]
     Indication: BRONCHOPULMONARY DYSPLASIA
  3. VITAMINS [Concomitant]
  4. UNKNOWN THERAPY [Concomitant]
  5. BUDESONIDE [Concomitant]
     Indication: ASTHMA
     Dates: start: 20090201, end: 20100603
  6. BUDESONIDE [Concomitant]
     Indication: BRONCHITIS
  7. FERROUS SULFATE [Concomitant]

REACTIONS (2)
  - CARDIAC ARREST [None]
  - PLATELET COUNT DECREASED [None]
